FAERS Safety Report 10192858 (Version 1)
Quarter: 2014Q2

REPORT INFORMATION
  Report Type: Report from Study
  Country: CA (occurrence: CA)
  Receive Date: 20140523
  Receipt Date: 20140523
  Transmission Date: 20141212
  Serious: Yes (Hospitalization, Other)
  Sender: FDA-Public Use
  Company Number: CA-ABBVIE-14P-028-1238312-00

PATIENT
  Age: 60 Year
  Sex: Male

DRUGS (3)
  1. HUMIRA [Suspect]
     Indication: RHEUMATOID ARTHRITIS
     Route: 058
     Dates: start: 20140428, end: 20140428
  2. PREDNISONE [Concomitant]
     Indication: RHEUMATOID ARTHRITIS
     Dates: start: 201405
  3. METHOTREXATE [Concomitant]
     Indication: RHEUMATOID ARTHRITIS
     Dates: end: 201405

REACTIONS (8)
  - Gait disturbance [Unknown]
  - Rash [Unknown]
  - Dyspnoea [Unknown]
  - Pyrexia [Unknown]
  - Malaise [Unknown]
  - Asthenia [Unknown]
  - Poor quality sleep [Not Recovered/Not Resolved]
  - Hypersensitivity [Unknown]
